FAERS Safety Report 21713016 (Version 1)
Quarter: 2022Q4

REPORT INFORMATION
  Report Type: Spontaneous
  Country: US (occurrence: US)
  Receive Date: 20221212
  Receipt Date: 20221212
  Transmission Date: 20230112
  Serious: No
  Sender: FDA-Public Use
  Company Number: US-PFIZER INC-202201352979

PATIENT
  Age: 61 Year
  Sex: Female

DRUGS (8)
  1. PAXLOVID [Suspect]
     Active Substance: NIRMATRELVIR\RITONAVIR
     Indication: COVID-19 treatment
     Dosage: UNK
     Dates: start: 20221129, end: 20221204
  2. TRAZODONE [Concomitant]
     Active Substance: TRAZODONE HYDROCHLORIDE
     Dosage: UNK
     Dates: start: 20170404, end: 20221129
  3. ATORVASTATIN [Concomitant]
     Active Substance: ATORVASTATIN
     Dosage: UNK
     Dates: start: 20220801, end: 20221129
  4. ESTRADIOL [Concomitant]
     Active Substance: ESTRADIOL
     Dosage: UNK
     Dates: start: 20140101, end: 20221204
  5. ASPIRIN [Concomitant]
     Active Substance: ASPIRIN
     Dosage: UNK
     Dates: start: 20080601, end: 20221204
  6. NATURE^S TRUTH VITAMIN C [Concomitant]
     Dosage: UNK
     Dates: start: 20221121, end: 20221205
  7. ADVIL [Concomitant]
     Active Substance: IBUPROFEN
     Dosage: UNK
     Dates: start: 20221127, end: 20221129
  8. SIGNATURE CARE NON DROWSY DAYTIME SEVERE COLD + FLU RELIEF [Concomitant]
     Dosage: UNK
     Dates: start: 20221126, end: 20221129

REACTIONS (9)
  - Ageusia [Recovering/Resolving]
  - Anosmia [Recovering/Resolving]
  - Dysgeusia [Recovering/Resolving]
  - Parosmia [Recovering/Resolving]
  - Nausea [Recovering/Resolving]
  - Diarrhoea [Recovering/Resolving]
  - Headache [Recovering/Resolving]
  - Lethargy [Recovering/Resolving]
  - Decreased appetite [Recovering/Resolving]

NARRATIVE: CASE EVENT DATE: 20221129
